FAERS Safety Report 6400602-7 (Version None)
Quarter: 2009Q4

REPORT INFORMATION
  Report Type: 
  Country: None (occurrence: None)
  Receive Date: 20091014
  Receipt Date: 20091002
  Transmission Date: 20100525
  Serious: Yes (Other)
  Sender: FDA-Public Use
  Company Number: PHHY2009BR42734

PATIENT
  Sex: Female

DRUGS (1)
  1. PARLODEL [Suspect]
     Dosage: 2.5 MG, UNK
     Dates: start: 20091001

REACTIONS (5)
  - DYSPNOEA [None]
  - FEELING ABNORMAL [None]
  - GAIT DISTURBANCE [None]
  - INSOMNIA [None]
  - NAUSEA [None]
